FAERS Safety Report 16275050 (Version 1)
Quarter: 2019Q2

REPORT INFORMATION
  Report Type: Spontaneous
  Country: US (occurrence: US)
  Receive Date: 20190503
  Receipt Date: 20190503
  Transmission Date: 20190711
  Serious: Yes (Hospitalization)
  Sender: FDA-Public Use
  Company Number: None

PATIENT
  Sex: Female

DRUGS (7)
  1. OXYCODONE CAP 50MG [Concomitant]
  2. CYMBALTA CAP 30MG [Concomitant]
  3. HYSINGLA ER TAB 60MG [Concomitant]
  4. RAYOS TAB 50MG [Concomitant]
  5. COSENTYX [Suspect]
     Active Substance: SECUKINUMAB
     Indication: PSORIATIC ARTHROPATHY
     Dosage: ?          OTHER FREQUENCY:MONTHLY;?
     Route: 058
     Dates: start: 20161013
  6. CYMBALTA CAP 60MG [Concomitant]
  7. KLONOPIN TAB 0.5MG [Concomitant]

REACTIONS (1)
  - Hospitalisation [None]
